FAERS Safety Report 6527228-9 (Version None)
Quarter: 2009Q4

REPORT INFORMATION
  Report Type: 
  Country: None (occurrence: None)
  Receive Date: 20091222
  Receipt Date: 20091026
  Transmission Date: 20100525
  Serious: No
  Sender: FDA-Public Use
  Company Number: ALL1-2009-03134

PATIENT
  Age: 9 Year
  Sex: Male

DRUGS (1)
  1. VYVANSE [Suspect]
     Indication: ATTENTION DEFICIT/HYPERACTIVITY DISORDER
     Dosage: 20 GM, 1X/DAY:QD, ORAL
     Route: 048
     Dates: start: 20090101, end: 20090101

REACTIONS (3)
  - DEHYDRATION [None]
  - PSYCHOMOTOR HYPERACTIVITY [None]
  - VOMITING [None]
